FAERS Safety Report 10853159 (Version 1)
Quarter: 2015Q1

REPORT INFORMATION
  Report Type: Spontaneous
  Country: US (occurrence: None)
  Receive Date: 20150218
  Receipt Date: 20150218
  Transmission Date: 20150721
  Serious: No
  Sender: FDA-Public Use
  Company Number: None

PATIENT
  Age: 62 Year
  Sex: Female

DRUGS (1)
  1. TROSPIUM CHLORIDE ER [Suspect]
     Active Substance: TROSPIUM CHLORIDE
     Indication: HYPERTONIC BLADDER
     Route: 048
     Dates: start: 20140911

REACTIONS (1)
  - Dry mouth [None]

NARRATIVE: CASE EVENT DATE: 20150213
